FAERS Safety Report 15299242 (Version 1)
Quarter: 2018Q3

REPORT INFORMATION
  Report Type: Spontaneous
  Country: US (occurrence: US)
  Receive Date: 20180808
  Receipt Date: 20180808
  Transmission Date: 20181010
  Serious: Yes (Hospitalization)
  Sender: FDA-Public Use
  Company Number: None

PATIENT
  Age: 55 Year
  Sex: Male

DRUGS (3)
  1. PROCHLORPER [Concomitant]
  2. OXYCODONE [Concomitant]
     Active Substance: OXYCODONE
  3. HYCAMTIN [Suspect]
     Active Substance: TOPOTECAN HYDROCHLORIDE
     Indication: LUNG NEOPLASM MALIGNANT
     Dosage: ?          OTHER FREQUENCY:M?F X 1 WK PER 21D;?
     Route: 048
     Dates: start: 201806, end: 201808

REACTIONS (2)
  - Hospitalisation [None]
  - Terminal state [None]
